FAERS Safety Report 9187535 (Version 5)
Quarter: 2014Q2

REPORT INFORMATION
  Report Type: Spontaneous
  Country: US (occurrence: US)
  Receive Date: 20130325
  Receipt Date: 20140629
  Transmission Date: 20141212
  Serious: Yes (Hospitalization, Other)
  Sender: FDA-Public Use
  Company Number: US-JNJFOC-20120705842

PATIENT
  Age: 28 Year
  Sex: Male

DRUGS (1)
  1. TYLENOL [Suspect]
     Indication: TOOTHACHE
     Route: 048

REACTIONS (15)
  - Shock [Unknown]
  - Erosive oesophagitis [Unknown]
  - Toxicity to various agents [Unknown]
  - Acute hepatic failure [Recovered/Resolved]
  - Duodenal ulcer [Recovered/Resolved]
  - Renal failure acute [Recovered/Resolved]
  - Encephalopathy [Recovered/Resolved]
  - Overdose [Unknown]
  - Thrombocytopenia [Recovered/Resolved]
  - Metabolic acidosis [Unknown]
  - Gastrointestinal haemorrhage [Recovered/Resolved]
  - Pancreatitis [Recovered/Resolved]
  - Hypertension [Unknown]
  - Acute respiratory distress syndrome [Recovered/Resolved]
  - Multi-organ failure [Recovered/Resolved]
